FAERS Safety Report 7917611-9 (Version None)
Quarter: 2011Q4

REPORT INFORMATION
  Report Type: 
  Country: None (occurrence: None)
  Receive Date: 20111116
  Receipt Date: 20111109
  Transmission Date: 20120403
  Serious: Yes (Other)
  Sender: FDA-Public Use
  Company Number: US-ABBOTT-11P-163-0873071-00

PATIENT
  Sex: Female
  Weight: 74.91 kg

DRUGS (8)
  1. FOLIC ACID [Concomitant]
     Indication: VITAMIN SUPPLEMENTATION
  2. HUMIRA [Suspect]
     Indication: RHEUMATOID ARTHRITIS
     Dates: end: 20100101
  3. METHOTREXATE [Concomitant]
     Indication: RHEUMATOID ARTHRITIS
     Dates: end: 20110701
  4. METHOTREXATE [Concomitant]
     Dates: start: 20111001
  5. FLUOXETINE HCL [Concomitant]
     Indication: ANXIOLYTIC THERAPY
  6. ASPIRIN [Concomitant]
     Indication: ANTICOAGULANT THERAPY
  7. HYDROXYZINE [Concomitant]
     Indication: PRURITUS
  8. HUMIRA [Suspect]
     Dates: start: 20100101, end: 20110701

REACTIONS (10)
  - SWELLING [None]
  - LUNG NEOPLASM MALIGNANT [None]
  - PNEUMONIA [None]
  - HAEMOPTYSIS [None]
  - COUGH [None]
  - RHEUMATOID ARTHRITIS [None]
  - PULMONARY CONGESTION [None]
  - CHEST X-RAY ABNORMAL [None]
  - BRONCHITIS [None]
  - PAIN [None]
